FAERS Safety Report 18794630 (Version 1)
Quarter: 2021Q1

REPORT INFORMATION
  Report Type: Spontaneous
  Country: US (occurrence: US)
  Receive Date: 20210127
  Receipt Date: 20210127
  Transmission Date: 20210419
  Serious: Yes (Other)
  Sender: FDA-Public Use
  Company Number: US-HIKMA PHARMACEUTICALS USA INC.-US-H14001-21-00363

PATIENT
  Age: 44 Year
  Sex: Male

DRUGS (5)
  1. ETOPOSIDE. [Suspect]
     Active Substance: ETOPOSIDE
     Indication: BURKITT^S LYMPHOMA
     Dosage: UNKNOWN
     Route: 065
  2. DOXORUBICIN [Suspect]
     Active Substance: DOXORUBICIN
     Indication: BURKITT^S LYMPHOMA
     Dosage: UNKNOWN
     Route: 065
  3. VINCRISTINE [Suspect]
     Active Substance: VINCRISTINE
     Indication: BURKITT^S LYMPHOMA
     Dosage: UNKNOWN
     Route: 065
  4. PREDNISOLONE. [Suspect]
     Active Substance: PREDNISOLONE
     Indication: BURKITT^S LYMPHOMA
     Dosage: UNKNOWN
     Route: 065
  5. CYCLOPHOSPHAMIDE. [Suspect]
     Active Substance: CYCLOPHOSPHAMIDE
     Indication: BURKITT^S LYMPHOMA
     Dosage: UNKNOWN
     Route: 065

REACTIONS (3)
  - Acute kidney injury [Recovered/Resolved]
  - Hyperphosphataemia [Recovered/Resolved]
  - Tumour lysis syndrome [Unknown]
